FAERS Safety Report 6414942-9 (Version None)
Quarter: 2009Q4

REPORT INFORMATION
  Report Type: 
  Country: None (occurrence: None)
  Receive Date: 20091026
  Receipt Date: 20090224
  Transmission Date: 20100525
  Serious: No
  Sender: FDA-Public Use
  Company Number: US-ABBOTT-09P-163-0559300-00

PATIENT
  Sex: Female
  Weight: 142.56 kg

DRUGS (2)
  1. LUPRON DEPOT [Suspect]
     Indication: MENORRHAGIA
     Route: 030
     Dates: start: 20081223
  2. LUPRON DEPOT [Suspect]
     Indication: PAIN

REACTIONS (3)
  - MENSTRUAL DISORDER [None]
  - METRORRHAGIA [None]
  - PAIN [None]
